FAERS Safety Report 5027916-X (Version None)
Quarter: 2006Q2

REPORT INFORMATION
  Report Type: 
  Country: None (occurrence: None)
  Receive Date: 20060616
  Receipt Date: 20060608
  Transmission Date: 20061013
  Serious: Yes (Hospitalization)
  Sender: FDA-Public Use
  Company Number: US-MERCK-0606USA01894

PATIENT
  Age: 53 Year
  Sex: Male

DRUGS (5)
  1. PRINIVIL [Suspect]
     Route: 048
  2. CARVEDILOL [Concomitant]
     Route: 065
  3. FUROSEMIDE [Concomitant]
     Route: 065
  4. AMLODIPINE BESYLATE [Concomitant]
     Route: 065
  5. POTASSIUM (UNSPECIFIED) [Concomitant]
     Route: 065

REACTIONS (5)
  - CARDIAC FAILURE CONGESTIVE [None]
  - DRUG INEFFECTIVE [None]
  - HYPERTENSIVE CRISIS [None]
  - PRIMARY HYPERALDOSTERONISM [None]
  - SCAN ADRENAL GLAND ABNORMAL [None]
